FAERS Safety Report 13535688 (Version 2)
Quarter: 2017Q2

REPORT INFORMATION
  Report Type: Report from Study
  Country: US (occurrence: US)
  Receive Date: 20170511
  Receipt Date: 20170518
  Transmission Date: 20170830
  Serious: Yes (Hospitalization)
  Sender: FDA-Public Use
  Company Number: US-JNJFOC-20170403238

PATIENT
  Age: 84 Year
  Sex: Female

DRUGS (25)
  1. IMBRUVICA [Suspect]
     Active Substance: IBRUTINIB
     Indication: CHRONIC LYMPHOCYTIC LEUKAEMIA
     Route: 048
     Dates: start: 20170429
  2. ATORVASTATIN [Concomitant]
     Active Substance: ATORVASTATIN
  3. DIPHENHYDRAMINE. [Concomitant]
     Active Substance: DIPHENHYDRAMINE
  4. LOVENOX [Concomitant]
     Active Substance: ENOXAPARIN SODIUM
  5. IMBRUVICA [Suspect]
     Active Substance: IBRUTINIB
     Indication: CHRONIC LYMPHOCYTIC LEUKAEMIA
     Route: 048
     Dates: start: 20170324, end: 20170427
  6. CALCIUM CARBONATE. [Concomitant]
     Active Substance: CALCIUM CARBONATE
  7. NORVASC [Concomitant]
     Active Substance: AMLODIPINE BESYLATE
  8. VITAMIN D [Concomitant]
     Active Substance: CHOLECALCIFEROL
  9. VITAMIN B [Concomitant]
     Active Substance: VITAMIN B
  10. TOPROL XL [Concomitant]
     Active Substance: METOPROLOL SUCCINATE
  11. MELATONIN [Concomitant]
     Active Substance: MELATONIN
  12. SENNA [Concomitant]
     Active Substance: SENNA LEAF\SENNOSIDES\SENNOSIDES A AND B
  13. COLACE [Concomitant]
     Active Substance: DOCUSATE SODIUM
  14. GABAPENTIN. [Concomitant]
     Active Substance: GABAPENTIN
  15. LORATADINE. [Concomitant]
     Active Substance: LORATADINE
  16. PYRIDOXINE [Concomitant]
     Active Substance: PYRIDOXINE
  17. VITAMIN B12 [Concomitant]
     Active Substance: CYANOCOBALAMIN
  18. IMBRUVICA [Suspect]
     Active Substance: IBRUTINIB
     Indication: CHRONIC LYMPHOCYTIC LEUKAEMIA
     Route: 048
     Dates: start: 20170325
  19. ASPIRIN. [Concomitant]
     Active Substance: ASPIRIN
  20. HYDROCHLOROTH [Concomitant]
     Active Substance: HYDROCHLOROTHIAZIDE
  21. WARFARIN [Concomitant]
     Active Substance: WARFARIN
  22. TYLENOL [Concomitant]
     Active Substance: ACETAMINOPHEN
  23. PRILOSEC [Concomitant]
     Active Substance: OMEPRAZOLE MAGNESIUM
  24. VITAMIN B6 [Concomitant]
     Active Substance: PYRIDOXINE HYDROCHLORIDE
  25. POTASSIUM [Concomitant]
     Active Substance: POTASSIUM

REACTIONS (7)
  - Pain [Unknown]
  - Vein disorder [Unknown]
  - Cellulitis [Not Recovered/Not Resolved]
  - Dysgeusia [Recovered/Resolved]
  - Arthralgia [Not Recovered/Not Resolved]
  - Haemorrhage subcutaneous [Not Recovered/Not Resolved]
  - Pain in extremity [Not Recovered/Not Resolved]

NARRATIVE: CASE EVENT DATE: 2017
